FAERS Safety Report 19986071 (Version 2)
Quarter: 2021Q4

REPORT INFORMATION
  Report Type: Report from Study
  Country: DE (occurrence: DE)
  Receive Date: 20211022
  Receipt Date: 20211108
  Transmission Date: 20220304
  Serious: Yes (Hospitalization, Other)
  Sender: FDA-Public Use
  Company Number: DE-EXELIXIS-XL18421045046

PATIENT
  Sex: Female
  Weight: 58 kg

DRUGS (2)
  1. NIVOLUMAB [Suspect]
     Active Substance: NIVOLUMAB
     Indication: Renal cell carcinoma
     Dosage: 240 MILLIGRAM
     Route: 065
     Dates: start: 20210803
  2. CABOZANTINIB [Suspect]
     Active Substance: CABOZANTINIB
     Indication: Renal cell carcinoma
     Dosage: 40 MILLIGRAM
     Route: 065
     Dates: start: 20210803, end: 20210915

REACTIONS (2)
  - Cardiac failure [Not Recovered/Not Resolved]
  - Seizure [Recovered/Resolved]

NARRATIVE: CASE EVENT DATE: 20210915
